FAERS Safety Report 6106790-4 (Version None)
Quarter: 2009Q1

REPORT INFORMATION
  Report Type: 
  Country: None (occurrence: None)
  Receive Date: 20090302
  Receipt Date: 20090223
  Transmission Date: 20090719
  Serious: Yes (Hospitalization)
  Sender: FDA-Public Use
  Company Number: WAES 0901USA02839

PATIENT
  Age: 59 Year
  Sex: Male

DRUGS (7)
  1. CAP MK-0683 (VORINOSTAT) [Suspect]
     Indication: MULTIPLE MYELOMA
     Dosage: 400 MG/DAILY, PO
     Route: 048
     Dates: start: 20090109
  2. VELCADE [Suspect]
     Indication: MULTIPLE MYELOMA
     Dosage: 2.29 MG, IV
     Route: 042
     Dates: start: 20090109
  3. LACTULOSE [Concomitant]
  4. KONAKION [Concomitant]
  5. NEXIUM [Concomitant]
  6. ZYLORIC [Concomitant]
  7. DOXYCYCLINE [Concomitant]

REACTIONS (9)
  - CHILLS [None]
  - DRUG TOXICITY [None]
  - HAEMOGLOBIN DECREASED [None]
  - INAPPROPRIATE ANTIDIURETIC HORMONE SECRETION [None]
  - INCREASED UPPER AIRWAY SECRETION [None]
  - NEUTROPHIL COUNT INCREASED [None]
  - PRODUCTIVE COUGH [None]
  - RENAL FAILURE [None]
  - STAPHYLOCOCCAL INFECTION [None]
